FAERS Safety Report 25983044 (Version 1)
Quarter: 2025Q4

REPORT INFORMATION
  Report Type: Spontaneous
  Country: US (occurrence: US)
  Receive Date: 20251031
  Receipt Date: 20251031
  Transmission Date: 20260118
  Serious: Yes (Death, Hospitalization)
  Sender: MERCK SHARP & DOHME LLC
  Company Number: US-009507513-2344860

PATIENT
  Sex: Male

DRUGS (4)
  1. EMEND [Suspect]
     Active Substance: APREPITANT
     Indication: Prophylaxis of nausea and vomiting
     Dosage: TIME INTERVAL: TOTAL: 150 MG / INFUSED OVER 20 -30 MINUTES
     Route: 042
     Dates: start: 20250923
  2. PEPCID [Concomitant]
     Active Substance: FAMOTIDINE
  3. ALOXY [Concomitant]
  4. BENADRYL [Concomitant]
     Active Substance: DIPHENHYDRAMINE HYDROCHLORIDE

REACTIONS (4)
  - Death [Fatal]
  - Cardiac arrest [Unknown]
  - Dyspnoea [Unknown]
  - Anaphylactic reaction [Unknown]

NARRATIVE: CASE EVENT DATE: 20250101
